FAERS Safety Report 26021596 (Version 1)
Quarter: 2025Q4

REPORT INFORMATION
  Report Type: Report from Study
  Country: US (occurrence: US)
  Receive Date: 20251110
  Receipt Date: 20251110
  Transmission Date: 20260118
  Serious: Yes (Other)
  Sender: ABBVIE
  Company Number: US-ABBVIE-6533680

PATIENT
  Age: 42 Year
  Sex: Female

DRUGS (1)
  1. RINVOQ [Suspect]
     Active Substance: UPADACITINIB
     Indication: Gastrointestinal disorder
     Dosage: FORM STRENGTH:15 MILLIGRAM
     Route: 048
     Dates: start: 20250708

REACTIONS (1)
  - Blindness [Unknown]
